FAERS Safety Report 6921690-5 (Version None)
Quarter: 2010Q3

REPORT INFORMATION
  Report Type: 
  Country: None (occurrence: None)
  Receive Date: 20100812
  Receipt Date: 20100802
  Transmission Date: 20110219
  Serious: Yes (Hospitalization)
  Sender: FDA-Public Use
  Company Number: US-JNJFOC-20100800630

PATIENT
  Age: 33 Year
  Sex: Female

DRUGS (2)
  1. EXTRA STRENGTH TYLENOL RAPID RELEASE GELCAPS [Suspect]
     Route: 048
  2. EXTRA STRENGTH TYLENOL RAPID RELEASE GELCAPS [Suspect]
     Indication: HEADACHE
     Route: 048

REACTIONS (4)
  - ABDOMINAL PAIN [None]
  - DRUG EXPOSURE DURING PREGNANCY [None]
  - INFLUENZA LIKE ILLNESS [None]
  - PRODUCT QUALITY ISSUE [None]
